FAERS Safety Report 7972053-5 (Version None)
Quarter: 2011Q4

REPORT INFORMATION
  Report Type: 
  Country: None (occurrence: None)
  Receive Date: 20111212
  Receipt Date: 20111130
  Transmission Date: 20120403
  Serious: Yes (Hospitalization, Other)
  Sender: FDA-Public Use
  Company Number: US-ELI_LILLY_AND_COMPANY-US201109006515

PATIENT
  Age: 87 Year
  Sex: Female

DRUGS (1)
  1. FORTEO [Suspect]
     Indication: OSTEOPOROSIS
     Dosage: 20 UG, QD
     Route: 065
     Dates: start: 20110501

REACTIONS (9)
  - INFECTION [None]
  - GASTRITIS [None]
  - MUSCULOSKELETAL DISCOMFORT [None]
  - PNEUMONIA [None]
  - RESPIRATORY DISORDER [None]
  - BLOOD POTASSIUM DECREASED [None]
  - HOSPITALISATION [None]
  - ILL-DEFINED DISORDER [None]
  - DYSPHAGIA [None]
